FAERS Safety Report 9012651 (Version 2)
Quarter: 2013Q1

REPORT INFORMATION
  Report Type: Spontaneous
  Country: US (occurrence: US)
  Receive Date: 20130114
  Receipt Date: 20130213
  Transmission Date: 20140127
  Serious: Yes (Other)
  Sender: FDA-Public Use
  Company Number: US-PFIZER INC-2013014947

PATIENT
  Sex: Female

DRUGS (8)
  1. LIPITOR [Suspect]
     Indication: BLOOD CHOLESTEROL INCREASED
     Dosage: 80 MG, 1X/DAY
     Route: 048
  2. ATORVASTATIN CALCIUM [Suspect]
     Dosage: UNK
  3. LASIX [Concomitant]
     Dosage: UNK
  4. POTASSIUM [Concomitant]
     Dosage: UNK
  5. PANTOZOL [Concomitant]
     Indication: GASTRIC DISORDER
     Dosage: UNK
  6. AMIODARONE [Concomitant]
     Dosage: 200 MG, UNK
  7. BABY ASPIRIN [Concomitant]
     Dosage: UNK
  8. WARFARIN [Concomitant]
     Dosage: UNK

REACTIONS (1)
  - Cardiac disorder [Unknown]
